FAERS Safety Report 8072122-8 (Version None)
Quarter: 2012Q1

REPORT INFORMATION
  Report Type: 
  Country: None (occurrence: None)
  Receive Date: 20120124
  Receipt Date: 20120124
  Transmission Date: 20120608
  Serious: Yes (Hospitalization)
  Sender: FDA-Public Use
  Company Number: None

PATIENT
  Age: 82 Year
  Sex: Male

DRUGS (1)
  1. GLIPIZIDE [Suspect]
     Indication: DIABETES MELLITUS
     Dosage: 5 MG AM PO
     Route: 048
     Dates: start: 20120115, end: 20120117

REACTIONS (4)
  - CREATININE RENAL CLEARANCE DECREASED [None]
  - TREATMENT NONCOMPLIANCE [None]
  - HYPOGLYCAEMIA [None]
  - BLOOD CREATININE INCREASED [None]
